FAERS Safety Report 5147157-5 (Version None)
Quarter: 2006Q4

REPORT INFORMATION
  Report Type: 
  Country: None (occurrence: None)
  Receive Date: 20061108
  Receipt Date: 20061108
  Transmission Date: 20070319
  Serious: Yes (Other)
  Sender: FDA-Public Use
  Company Number: None

PATIENT
  Age: 60 Year
  Sex: Male
  Weight: 117.9352 kg

DRUGS (2)
  1. LESCOL XL [Suspect]
     Indication: BLOOD CHOLESTEROL INCREASED
     Dosage: 1 TABLET  NIGHT TIME  PO
     Route: 048
     Dates: start: 20030728, end: 20061009
  2. LESCOL XL [Suspect]
     Indication: BLOOD TRIGLYCERIDES INCREASED
     Dosage: 1 TABLET  NIGHT TIME  PO
     Route: 048
     Dates: start: 20030728, end: 20061009

REACTIONS (4)
  - ASTHENIA [None]
  - CONTUSION [None]
  - MUSCULAR WEAKNESS [None]
  - NAUSEA [None]
